FAERS Safety Report 8322865-3 (Version None)
Quarter: 2012Q2

REPORT INFORMATION
  Report Type: 
  Country: None (occurrence: None)
  Receive Date: 20120430
  Receipt Date: 20120419
  Transmission Date: 20120825
  Serious: Yes (Other)
  Sender: FDA-Public Use
  Company Number: US-US-EMD SERONO, INC.-7122884

PATIENT
  Age: 26 Year
  Sex: Female

DRUGS (4)
  1. PERGONAL (MENOTROPIN FOR INJECTION, USP) [Suspect]
     Indication: OVULATION INDUCTION
  2. RECOMBINANT HUMAN FOLLICLE-STIMULATING HORMONE (R-HFSH) [Suspect]
     Indication: OVULATION INDUCTION
  3. LUPRON [Suspect]
     Indication: OVULATION INDUCTION
  4. CHORIONIC GONADOTROPIN [Suspect]
     Indication: OVULATION INDUCTION

REACTIONS (1)
  - ABORTION SPONTANEOUS [None]
